FAERS Safety Report 18212711 (Version 1)
Quarter: 2020Q3

REPORT INFORMATION
  Report Type: Spontaneous
  Country: MT (occurrence: MT)
  Receive Date: 20200829
  Receipt Date: 20200829
  Transmission Date: 20201103
  Serious: No
  Sender: FDA-Public Use
  Company Number: None

PATIENT
  Age: 40 Year
  Sex: Female
  Weight: 55 kg

DRUGS (2)
  1. KESOL [BUDESONIDE] [Suspect]
     Active Substance: BUDESONIDE
     Indication: MULTIPLE ALLERGIES
     Dates: start: 20200825, end: 20200828
  2. QLAIRA [Concomitant]
     Active Substance: DIENOGEST\ESTRADIOL VALERATE

REACTIONS (4)
  - Lip swelling [None]
  - Nasal oedema [None]
  - Swelling face [None]
  - Urticaria [None]

NARRATIVE: CASE EVENT DATE: 20200828
